FAERS Safety Report 18806987 (Version 1)
Quarter: 2021Q1

REPORT INFORMATION
  Report Type: Spontaneous
  Country: US (occurrence: US)
  Receive Date: 20210128
  Receipt Date: 20210128
  Transmission Date: 20210419
  Serious: Yes (Hospitalization)
  Sender: FDA-Public Use
  Company Number: None

PATIENT
  Age: 12 Year
  Sex: Male
  Weight: 27.9 kg

DRUGS (8)
  1. HALOPERIDOL LAC 2 MG/ML CONC [Suspect]
     Active Substance: HALOPERIDOL LACTATE
     Indication: AGGRESSION
     Dosage: ?          QUANTITY:1 ML;?
     Route: 048
     Dates: start: 20191001, end: 20200501
  2. TRAZODONE [Concomitant]
     Active Substance: TRAZODONE HYDROCHLORIDE
  3. VITAMIN D DROPS [Concomitant]
  4. BANZEL [Concomitant]
     Active Substance: RUFINAMIDE
  5. COGENTIN [Concomitant]
     Active Substance: BENZTROPINE MESYLATE
  6. MULTIVITAMINS [Concomitant]
     Active Substance: VITAMINS
  7. LAMICTAL [Concomitant]
     Active Substance: LAMOTRIGINE
  8. ZYPREXA [Suspect]
     Active Substance: OLANZAPINE
     Indication: AGGRESSION
     Dosage: ?          QUANTITY:2 TABLET(S);?
     Route: 048
     Dates: start: 20200501, end: 20201001

REACTIONS (4)
  - Feeding disorder [None]
  - Speech disorder [None]
  - Ileus [None]
  - Dystonia [None]

NARRATIVE: CASE EVENT DATE: 20201001
